FAERS Safety Report 8316684-1 (Version None)
Quarter: 2012Q2

REPORT INFORMATION
  Report Type: 
  Country: None (occurrence: None)
  Receive Date: 20120425
  Receipt Date: 20120425
  Transmission Date: 20120825
  Serious: Yes (Hospitalization)
  Sender: FDA-Public Use
  Company Number: None

PATIENT
  Age: 82 Year
  Sex: Female
  Weight: 61 kg

DRUGS (1)
  1. SIMVASTATIN [Suspect]
     Indication: HYPERCHOLESTEROLAEMIA
     Dosage: SIMVASTATIN 80 MG DAILY ORALLY
     Route: 048

REACTIONS (4)
  - BLOOD PRESSURE IMMEASURABLE [None]
  - UNRESPONSIVE TO STIMULI [None]
  - HEART RATE DECREASED [None]
  - RHABDOMYOLYSIS [None]
